FAERS Safety Report 9536746 (Version 1)
Quarter: 2013Q3

REPORT INFORMATION
  Report Type: Spontaneous
  Country: ZA (occurrence: ZA)
  Receive Date: 20130919
  Receipt Date: 20130919
  Transmission Date: 20140515
  Serious: Yes (Other)
  Sender: FDA-Public Use
  Company Number: ZA-ASTRAZENECA-2013SE69183

PATIENT
  Sex: Female

DRUGS (11)
  1. ZUVAMOR [Suspect]
     Indication: DYSLIPIDAEMIA
     Dosage: CRESTOR
     Route: 048
  2. ZUVAMOR [Suspect]
     Indication: DYSLIPIDAEMIA
     Route: 048
  3. ZUVAMOR [Suspect]
     Indication: DYSLIPIDAEMIA
     Route: 048
  4. ZUVAMOR [Suspect]
     Indication: DYSLIPIDAEMIA
     Dosage: CRESTOR
     Route: 048
  5. AVAMYS SP [Concomitant]
  6. LEXAMIL [Concomitant]
  7. GLUCOPHAGE [Concomitant]
     Dosage: TWO TIMES A DAY
  8. INDAPAMIDE [Concomitant]
  9. LIBRAX [Concomitant]
  10. GASTRIWIN (PANTOPRAZOLE) [Concomitant]
  11. ZOLPIDEM [Concomitant]

REACTIONS (3)
  - Pain [Unknown]
  - Fatigue [Unknown]
  - Myalgia [Recovered/Resolved]
